FAERS Safety Report 4807430-4 (Version None)
Quarter: 2005Q4

REPORT INFORMATION
  Report Type: 
  Country: None (occurrence: None)
  Receive Date: 20051020
  Receipt Date: 20051004
  Transmission Date: 20060501
  Serious: Yes (Hospitalization)
  Sender: FDA-Public Use
  Company Number: 2005BI015847

PATIENT
  Age: 78 Year
  Sex: Female
  Weight: 86.1834 kg

DRUGS (4)
  1. AVONEX LYOPHILIZED [Suspect]
     Indication: MULTIPLE SCLEROSIS
     Dosage: 30 UG; QW; IM
     Route: 030
     Dates: start: 19980101, end: 20030801
  2. AVONEX LIQUID [Suspect]
     Indication: MULTIPLE SCLEROSIS
     Dosage: 30 UG; QW; IM
     Route: 030
     Dates: start: 20030801
  3. LISINOPRIL [Concomitant]
  4. SYNTHROID [Concomitant]

REACTIONS (4)
  - ALOPECIA [None]
  - ASTHENIA [None]
  - BLOOD PRESSURE DECREASED [None]
  - MYOCARDIAL INFARCTION [None]
